FAERS Safety Report 12387110 (Version 1)
Quarter: 2016Q2

REPORT INFORMATION
  Report Type: Spontaneous
  Country: US (occurrence: US)
  Receive Date: 20160519
  Receipt Date: 20160519
  Transmission Date: 20160815
  Serious: No
  Sender: FDA-Public Use
  Company Number: US-JNJFOC-20160415857

PATIENT
  Sex: Female

DRUGS (1)
  1. DARZALEX [Suspect]
     Active Substance: DARATUMUMAB
     Indication: PRODUCT USED FOR UNKNOWN INDICATION
     Route: 042
     Dates: start: 20160407

REACTIONS (6)
  - Drug dose omission [Unknown]
  - Drug prescribing error [Unknown]
  - Pyrexia [Unknown]
  - Chills [Unknown]
  - Wrong technique in product usage process [Unknown]
  - Wheezing [Unknown]
